FAERS Safety Report 4307260-6 (Version None)
Quarter: 2004Q1

REPORT INFORMATION
  Report Type: 
  Country: None (occurrence: None)
  Receive Date: 20040227
  Receipt Date: 20021212
  Transmission Date: 20041129
  Serious: Yes (Disabling, Other)
  Sender: FDA-Public Use
  Company Number: WAES 0212AUS00075

PATIENT
  Age: 95 Year
  Sex: Male

DRUGS (4)
  1. ASPIRIN [Concomitant]
  2. ATENOLOL [Concomitant]
  3. ZOCOR [Suspect]
     Route: 048
     Dates: start: 19970101, end: 20021001
  4. ZOCOR [Suspect]
     Route: 048
     Dates: start: 20021001, end: 20021205

REACTIONS (6)
  - BLOOD CREATINE PHOSPHOKINASE INCREASED [None]
  - LIVER FUNCTION TEST ABNORMAL [None]
  - MYOGLOBINURIA [None]
  - OSTEOSCLEROSIS [None]
  - PAIN [None]
  - RHABDOMYOLYSIS [None]
